FAERS Safety Report 5297378-6 (Version None)
Quarter: 2007Q2

REPORT INFORMATION
  Report Type: 
  Country: None (occurrence: None)
  Receive Date: 20070416
  Receipt Date: 20070402
  Transmission Date: 20071010
  Serious: Yes (Other)
  Sender: FDA-Public Use
  Company Number: PHBS2007BR05874

PATIENT
  Age: 18 Year
  Sex: Female
  Weight: 51 kg

DRUGS (6)
  1. FORASEQ [Suspect]
     Indication: ASTHMA
     Dosage: 1 DF, BID
     Dates: end: 20070330
  2. BEROTEC [Suspect]
     Indication: ASTHMATIC CRISIS
     Dosage: 5 DRPS WITH SALINE EVERY 3 HOURS
     Dates: start: 20070331, end: 20070331
  3. BEROTEC [Suspect]
     Dosage: 3 INHALATIONS WITH OXYGEN
     Dates: start: 20070401, end: 20070401
  4. ATROVENT [Suspect]
     Indication: ASTHMATIC CRISIS
     Dosage: 10 DRPS WITH SALINE EVERY 3 HOURS
     Dates: start: 20070331, end: 20070331
  5. ATROVENT [Suspect]
     Dosage: 3 INHALATIONS WITH OXYGEN
     Dates: start: 20070401, end: 20070401
  6. AMINOPHYLLINE [Suspect]
     Indication: ASTHMATIC CRISIS
     Dosage: ONE INJECTION
     Dates: start: 20070401, end: 20070401

REACTIONS (8)
  - ANOREXIA [None]
  - ASTHMATIC CRISIS [None]
  - DIZZINESS [None]
  - DRUG TOXICITY [None]
  - FEELING ABNORMAL [None]
  - RETCHING [None]
  - TREMOR [None]
  - VOMITING [None]
